FAERS Safety Report 5195818-4 (Version None)
Quarter: 2006Q4

REPORT INFORMATION
  Report Type: 
  Country: None (occurrence: None)
  Receive Date: 20061227
  Receipt Date: 20061219
  Transmission Date: 20070319
  Serious: Yes (Other)
  Sender: FDA-Public Use
  Company Number: 2006EN000025

PATIENT
  Age: 43 Year
  Sex: Female
  Weight: 90.7194 kg

DRUGS (6)
  1. OPANA ER [Suspect]
     Indication: PAIN
     Dosage: SEE IMAGE
     Dates: start: 20060915, end: 20060921
  2. OPANA ER [Suspect]
     Indication: PAIN
     Dosage: SEE IMAGE
     Dates: start: 20060921, end: 20061006
  3. OPANA ER [Suspect]
     Indication: PAIN
     Dosage: SEE IMAGE
     Dates: start: 20061006, end: 20061023
  4. ANTIHYPERTENSIVES [Concomitant]
  5. OXYCODONE HCL [Concomitant]
  6. ZANAFLEX [Concomitant]

REACTIONS (8)
  - BENIGN INTRACRANIAL HYPERTENSION [None]
  - BLOOD PRESSURE INCREASED [None]
  - DRY MOUTH [None]
  - HEADACHE [None]
  - NAUSEA [None]
  - OPTIC NEURITIS [None]
  - SINUSITIS [None]
  - VISUAL DISTURBANCE [None]
